FAERS Safety Report 22030839 (Version 2)
Quarter: 2023Q1

REPORT INFORMATION
  Report Type: Spontaneous
  Country: FR (occurrence: FR)
  Receive Date: 20230223
  Receipt Date: 20230330
  Transmission Date: 20230418
  Serious: Yes (Death, Other)
  Sender: FDA-Public Use
  Company Number: None

PATIENT
  Age: 67 Year
  Sex: Male
  Weight: 66.5 kg

DRUGS (3)
  1. CISPLATIN [Suspect]
     Active Substance: CISPLATIN
     Indication: Tonsil cancer
     Dosage: 34 MG, 1X/DAY
     Route: 042
     Dates: start: 20230118, end: 20230121
  2. FLUOROURACIL [Suspect]
     Active Substance: FLUOROURACIL
     Indication: Tonsil cancer
     Dosage: 2550 MG
     Route: 042
     Dates: start: 20230118, end: 20230120
  3. DOCETAXEL [Suspect]
     Active Substance: DOCETAXEL
     Indication: Tonsil cancer
     Dosage: 129 MG
     Route: 042
     Dates: start: 20230120, end: 20230120

REACTIONS (5)
  - Circulatory collapse [Fatal]
  - Thrombocytopenia [Fatal]
  - Leukopenia [Fatal]
  - Bone marrow failure [Fatal]
  - Colitis [Fatal]

NARRATIVE: CASE EVENT DATE: 20230130
